FAERS Safety Report 7306688-X (Version None)
Quarter: 2011Q1

REPORT INFORMATION
  Report Type: 
  Country: None (occurrence: None)
  Receive Date: 20110222
  Receipt Date: 20110211
  Transmission Date: 20110831
  Serious: Yes (Other)
  Sender: FDA-Public Use
  Company Number: PHHY2011US11457

PATIENT
  Sex: Female

DRUGS (2)
  1. EXTAVIA [Suspect]
     Indication: MULTIPLE SCLEROSIS
     Dosage: 0.625 MG, QOD
     Route: 058
     Dates: start: 20110107
  2. EXTAVIA [Suspect]
     Dosage: 0.187 MG, QOD
     Route: 058

REACTIONS (4)
  - PANIC ATTACK [None]
  - HERPES ZOSTER [None]
  - INJECTION SITE ERYTHEMA [None]
  - ANXIETY [None]
